FAERS Safety Report 22003997 (Version 15)
Quarter: 2023Q4

REPORT INFORMATION
  Report Type: Report from Study
  Country: MY (occurrence: None)
  Receive Date: 20230217
  Receipt Date: 20231004
  Transmission Date: 20240109
  Serious: Yes (Hospitalization)
  Sender: FDA-Public Use
  Company Number: MY-Eisai Medical Research-EC-2023-134245

PATIENT
  Age: 71 Year
  Sex: Male
  Weight: 77.9 kg

DRUGS (17)
  1. LENVATINIB [Suspect]
     Active Substance: LENVATINIB
     Indication: Clear cell renal cell carcinoma
     Dosage: STARTING 20 MG, FLUCTUATED DOSAGE
     Route: 048
     Dates: start: 20220810, end: 20230209
  2. LENVATINIB [Suspect]
     Active Substance: LENVATINIB
     Dosage: DOSE REDUCED, 8 MG
     Route: 048
     Dates: start: 20220329
  3. PEMBROLIZUMAB [Suspect]
     Active Substance: PEMBROLIZUMAB
     Indication: Clear cell renal cell carcinoma
     Route: 041
     Dates: start: 20220810, end: 20230106
  4. PEMBROLIZUMAB [Suspect]
     Active Substance: PEMBROLIZUMAB
     Route: 041
     Dates: start: 20230322
  5. BELZUTIFAN [Suspect]
     Active Substance: BELZUTIFAN
     Indication: Clear cell renal cell carcinoma
     Route: 048
     Dates: start: 20220810, end: 20230209
  6. BELZUTIFAN [Suspect]
     Active Substance: BELZUTIFAN
     Dosage: DOSE REDUCED
     Route: 048
     Dates: start: 20230322
  7. FELODIPINE [Concomitant]
     Active Substance: FELODIPINE
     Dates: start: 20220728
  8. GLICLAZIDE [Concomitant]
     Active Substance: GLICLAZIDE
     Dates: start: 20220728
  9. TAMSULOSIN HYDROCHLORIDE [Concomitant]
     Active Substance: TAMSULOSIN HYDROCHLORIDE
     Dates: start: 20220728
  10. FINASTERIDE [Concomitant]
     Active Substance: FINASTERIDE
     Dates: start: 20220729
  11. ESOMEPRAZOLE [Concomitant]
     Active Substance: ESOMEPRAZOLE
     Dates: start: 20220728
  12. IBERET FOLIC [Concomitant]
     Dates: start: 20220728
  13. VITAMINS NOS [Concomitant]
     Active Substance: VITAMINS
     Dates: start: 20220905
  14. MAGNESIUM TRISILICATE [Concomitant]
     Active Substance: MAGNESIUM TRISILICATE
     Dates: start: 20220905
  15. PANTOPRAZOLE [Concomitant]
     Active Substance: PANTOPRAZOLE
     Dates: start: 20220905
  16. FUROSEMIDE [Concomitant]
     Active Substance: FUROSEMIDE
     Dates: start: 20220905
  17. ACETAMINOPHEN [Concomitant]
     Active Substance: ACETAMINOPHEN
     Dates: start: 20220829

REACTIONS (2)
  - Gastroenteritis [Recovered/Resolved]
  - Hyponatraemia [Recovered/Resolved]

NARRATIVE: CASE EVENT DATE: 20230207
